FAERS Safety Report 7077612-2 (Version None)
Quarter: 2010Q4

REPORT INFORMATION
  Report Type: 
  Country: None (occurrence: None)
  Receive Date: 20101021
  Receipt Date: 20101014
  Transmission Date: 20110411
  Serious: Yes (Hospitalization)
  Sender: FDA-Public Use
  Company Number: 020378

PATIENT
  Sex: Female
  Weight: 68.2 kg

DRUGS (4)
  1. VIMPAT [Suspect]
     Indication: EPILEPSY
     Dosage: (250 MG BID ORAL)
     Route: 048
  2. LEVETIRACETAM [Concomitant]
  3. CLOBAZAM [Concomitant]
  4. LAMOTRIGINE [Concomitant]

REACTIONS (2)
  - CONDITION AGGRAVATED [None]
  - CONVULSION [None]
